FAERS Safety Report 8190995-5 (Version None)
Quarter: 2012Q1

REPORT INFORMATION
  Report Type: 
  Country: None (occurrence: None)
  Receive Date: 20120221
  Receipt Date: 20111117
  Transmission Date: 20120608
  Serious: No
  Sender: FDA-Public Use
  Company Number: 1000025625

PATIENT
  Sex: Female

DRUGS (2)
  1. VIIBRYD [Suspect]
     Dosage: 20 MG (20 MG, 1 IN 1 D), ORAL
     Route: 048
  2. VIIBRYD [Suspect]
     Dosage: 10 MG

REACTIONS (4)
  - ANXIETY [None]
  - NAUSEA [None]
  - DECREASED APPETITE [None]
  - DRY MOUTH [None]
